FAERS Safety Report 6551515-1 (Version None)
Quarter: 2010Q1

REPORT INFORMATION
  Report Type: 
  Country: None (occurrence: None)
  Receive Date: 20100126
  Receipt Date: 20100120
  Transmission Date: 20100710
  Serious: Yes (Death)
  Sender: FDA-Public Use
  Company Number: DE-SANOFI-AVENTIS-2010SA002943

PATIENT
  Age: 56 Year
  Sex: Male
  Weight: 61 kg

DRUGS (9)
  1. DOCETAXEL [Suspect]
     Route: 041
     Dates: start: 20100105, end: 20100105
  2. CETUXIMAB [Suspect]
     Route: 042
     Dates: start: 20091215, end: 20091215
  3. CETUXIMAB [Suspect]
     Route: 042
     Dates: start: 20091222, end: 20091222
  4. CETUXIMAB [Suspect]
     Route: 042
     Dates: start: 20091229, end: 20091229
  5. CETUXIMAB [Suspect]
     Route: 042
     Dates: start: 20100105, end: 20100105
  6. CETUXIMAB [Suspect]
     Route: 042
     Dates: start: 20100112, end: 20100112
  7. CISPLATIN [Suspect]
     Route: 042
     Dates: start: 20100105, end: 20100105
  8. TAVANIC [Concomitant]
     Indication: DRUG USE FOR UNKNOWN INDICATION
     Route: 048
     Dates: start: 20100105, end: 20100114
  9. RAMIPRIL [Concomitant]
     Indication: DRUG USE FOR UNKNOWN INDICATION
     Route: 065

REACTIONS (1)
  - PULMONARY EMBOLISM [None]
